FAERS Safety Report 21893073 (Version 1)
Quarter: 2023Q1

REPORT INFORMATION
  Report Type: Spontaneous
  Country: US (occurrence: US)
  Receive Date: 20230121
  Receipt Date: 20230121
  Transmission Date: 20230418
  Serious: Yes (Death)
  Sender: FDA-Public Use
  Company Number: US-APOTEX-2023AP001524

PATIENT
  Age: 63 Year
  Sex: Female

DRUGS (2)
  1. ACETAMINOPHEN [Suspect]
     Active Substance: ACETAMINOPHEN
     Indication: Product used for unknown indication
     Dosage: UNK
     Route: 048
  2. ACETAMINOPHEN\HYDROCODONE [Suspect]
     Active Substance: ACETAMINOPHEN\HYDROCODONE
     Indication: Product used for unknown indication
     Dosage: UNK
     Route: 048

REACTIONS (1)
  - Intentional product misuse [Fatal]
